FAERS Safety Report 11691652 (Version 2)
Quarter: 2015Q4

REPORT INFORMATION
  Report Type: Report from Study
  Country: US (occurrence: US)
  Receive Date: 20151102
  Receipt Date: 20151209
  Transmission Date: 20160304
  Serious: Yes (Death, Other)
  Sender: FDA-Public Use
  Company Number: US-AMGEN-USASL2015114179

PATIENT
  Age: 80 Year
  Sex: Female
  Weight: 63.95 kg

DRUGS (3)
  1. VITAMINS                           /00067501/ [Concomitant]
     Active Substance: VITAMINS
  2. PROLIA [Suspect]
     Active Substance: DENOSUMAB
     Indication: OSTEOPOROSIS POSTMENOPAUSAL
     Dosage: 60 MG, Q6MO
     Route: 058
     Dates: start: 201505
  3. IRON [Concomitant]
     Active Substance: IRON

REACTIONS (4)
  - Anaemia of malignant disease [Unknown]
  - Drug intolerance [Unknown]
  - Oedema peripheral [Unknown]
  - Colon cancer [Fatal]

NARRATIVE: CASE EVENT DATE: 20150708
